FAERS Safety Report 22892349 (Version 2)
Quarter: 2023Q4

REPORT INFORMATION
  Report Type: Report from Study
  Country: US (occurrence: US)
  Receive Date: 20230901
  Receipt Date: 20231005
  Transmission Date: 20240110
  Serious: No
  Sender: FDA-Public Use
  Company Number: US-SA-SAC20230829000927

PATIENT
  Age: 35 Year
  Sex: Female

DRUGS (3)
  1. DUPILUMAB [Suspect]
     Active Substance: DUPILUMAB
     Indication: Dermatitis atopic
     Dosage: UNK UNK, 1X
     Route: 058
     Dates: start: 20230713, end: 20230713
  2. DUPILUMAB [Suspect]
     Active Substance: DUPILUMAB
     Dosage: 150 MG, QOW
     Route: 058
     Dates: start: 202307
  3. DUPILUMAB [Suspect]
     Active Substance: DUPILUMAB
     Dosage: 300 MG, QOW
     Route: 058
     Dates: start: 20230815, end: 20230907

REACTIONS (3)
  - Eye pruritus [Unknown]
  - Product dispensing error [Unknown]
  - Incorrect dose administered [Unknown]

NARRATIVE: CASE EVENT DATE: 20230101
